FAERS Safety Report 9005152 (Version 1)
Quarter: 2013Q1

REPORT INFORMATION
  Report Type: Spontaneous
  Country: US (occurrence: None)
  Receive Date: 20130107
  Receipt Date: 20130107
  Transmission Date: 20140127
  Serious: No
  Sender: FDA-Public Use
  Company Number: None

PATIENT
  Sex: 0

DRUGS (1)
  1. LEVETIRACETAM [Suspect]

REACTIONS (5)
  - Metal poisoning [None]
  - Balance disorder [None]
  - Nervous system disorder [None]
  - Disturbance in attention [None]
  - Thinking abnormal [None]
